FAERS Safety Report 11104423 (Version 1)
Quarter: 2015Q2

REPORT INFORMATION
  Report Type: Spontaneous
  Country: US (occurrence: US)
  Receive Date: 20150511
  Receipt Date: 20150511
  Transmission Date: 20150821
  Serious: Yes (Hospitalization)
  Sender: FDA-Public Use
  Company Number: US-PFIZER INC-2015152698

PATIENT
  Age: 71 Year
  Sex: Female
  Weight: 82 kg

DRUGS (8)
  1. ASPIRIN. [Concomitant]
     Active Substance: ASPIRIN
     Indication: CORONARY ARTERY OCCLUSION
     Dosage: UNK
  2. TRAMADOL [Concomitant]
     Active Substance: TRAMADOL
     Indication: GASTROOESOPHAGEAL REFLUX DISEASE
     Dosage: UNK
  3. NEURONTIN [Suspect]
     Active Substance: GABAPENTIN
     Indication: ATTENTION DEFICIT/HYPERACTIVITY DISORDER
     Dosage: 300 MG, 3X/DAY
     Dates: start: 2004
  4. HYDROCHLOROTHIAZIDE. [Concomitant]
     Active Substance: HYDROCHLOROTHIAZIDE
     Indication: BLOOD PRESSURE ABNORMAL
     Dosage: 300 MG, 3X/DAY
  5. RANITIDINE [Concomitant]
     Active Substance: RANITIDINE\RANITIDINE HYDROCHLORIDE
     Indication: GASTROOESOPHAGEAL REFLUX DISEASE
     Dosage: UNK
  6. FERROUS SULFATE [Concomitant]
     Active Substance: FERROUS SULFATE\FERROUS SULFATE, DRIED
     Indication: BLOOD IRON DECREASED
     Dosage: UNK
  7. NEURONTIN [Suspect]
     Active Substance: GABAPENTIN
     Indication: PERIPHERAL NERVE INJURY
  8. AVONEX [Concomitant]
     Active Substance: INTERFERON BETA-1A
     Indication: CORONARY ARTERY OCCLUSION
     Dosage: 25 MG, UNK

REACTIONS (18)
  - Malaise [Unknown]
  - Muscle spasms [Unknown]
  - Cognitive disorder [Unknown]
  - Oxygen saturation decreased [Unknown]
  - Insomnia [Unknown]
  - Memory impairment [Unknown]
  - Anger [Unknown]
  - Irritability [Unknown]
  - Dizziness [Unknown]
  - Visual acuity reduced [Unknown]
  - Activities of daily living impaired [Unknown]
  - Nerve injury [Unknown]
  - Urinary tract infection [Unknown]
  - Gait disturbance [Unknown]
  - Pruritus [Unknown]
  - Speech disorder [Unknown]
  - Hearing impaired [Unknown]
  - Drug ineffective for unapproved indication [Unknown]

NARRATIVE: CASE EVENT DATE: 2013
